FAERS Safety Report 20166760 (Version 4)
Quarter: 2022Q3

REPORT INFORMATION
  Report Type: Report from Study
  Country: IT (occurrence: IT)
  Receive Date: 20211209
  Receipt Date: 20220722
  Transmission Date: 20221027
  Serious: Yes (Hospitalization, Other)
  Sender: FDA-Public Use
  Company Number: IT-TAKEDA-2021TUS077468

PATIENT
  Age: 75 Year
  Sex: Female
  Weight: 77 kg

DRUGS (6)
  1. ICATIBANT [Suspect]
     Active Substance: ICATIBANT ACETATE
     Indication: Hereditary angioedema
     Dosage: 30 MILLIGRAM
     Route: 058
     Dates: start: 20160406
  2. ICATIBANT [Suspect]
     Active Substance: ICATIBANT ACETATE
     Indication: Hereditary angioedema
     Dosage: 30 MILLIGRAM
     Route: 058
     Dates: start: 20160406
  3. ICATIBANT [Suspect]
     Active Substance: ICATIBANT ACETATE
     Indication: Angioedema
     Dosage: 30 MILLIGRAM
     Route: 050
     Dates: start: 20210119
  4. ICATIBANT [Suspect]
     Active Substance: ICATIBANT ACETATE
     Indication: Angioedema
     Dosage: 30 MILLIGRAM
     Route: 050
     Dates: start: 20210119
  5. ATENOLOL [Concomitant]
     Active Substance: ATENOLOL
     Indication: Hypertension
     Dosage: 100 MILLIGRAM, QD
     Route: 048
  6. RUPATADINE [Concomitant]
     Active Substance: RUPATADINE
     Indication: Rhinitis allergic
     Dosage: 10 MILLIGRAM, QD
     Route: 048

REACTIONS (1)
  - Ocular lymphoma [Not Recovered/Not Resolved]

NARRATIVE: CASE EVENT DATE: 20211109
